FAERS Safety Report 13717090 (Version 1)
Quarter: 2017Q3

REPORT INFORMATION
  Report Type: Spontaneous
  Country: AT (occurrence: AT)
  Receive Date: 20170705
  Receipt Date: 20170705
  Transmission Date: 20171127
  Serious: Yes (Hospitalization, Other)
  Sender: FDA-Public Use
  Company Number: AT-VALIDUS PHARMACEUTICALS LLC-AT-2017VAL000981

PATIENT
  Age: 16 Year
  Sex: Female

DRUGS (26)
  1. DEXAMETHASONE. [Suspect]
     Active Substance: DEXAMETHASONE
     Indication: HEAD INJURY
  2. LEVOFLOXACIN. [Suspect]
     Active Substance: LEVOFLOXACIN
     Indication: INJURY
     Dosage: UNK
     Route: 065
  3. VANCOMYCIN [Suspect]
     Active Substance: VANCOMYCIN
     Indication: INJURY
     Dosage: UNK
     Route: 065
  4. VANCOMYCIN [Suspect]
     Active Substance: VANCOMYCIN
     Indication: HEAD INJURY
  5. DEXAMETHASONE. [Suspect]
     Active Substance: DEXAMETHASONE
     Indication: INJURY
     Dosage: 80 MG, QD
     Route: 065
  6. PREDNISOLONE. [Suspect]
     Active Substance: PREDNISOLONE
     Indication: HEAD INJURY
  7. HYDROCORTISONE. [Suspect]
     Active Substance: HYDROCORTISONE
     Indication: HEAD INJURY
  8. METRONIDAZOLE. [Suspect]
     Active Substance: METRONIDAZOLE
     Indication: INJURY
     Dosage: UNK
     Route: 065
  9. MEROPENEM. [Suspect]
     Active Substance: MEROPENEM
     Indication: PRODUCT USED FOR UNKNOWN INDICATION
     Dosage: UNK
     Route: 065
  10. HYDROCORTISONE. [Suspect]
     Active Substance: HYDROCORTISONE
     Indication: INJURY
     Dosage: UNK
     Route: 065
  11. METRONIDAZOLE. [Suspect]
     Active Substance: METRONIDAZOLE
     Indication: HEAD INJURY
  12. ERYTHROMYCIN. [Suspect]
     Active Substance: ERYTHROMYCIN
     Indication: INJURY
     Dosage: UNK
     Route: 065
  13. LEVOFLOXACIN. [Suspect]
     Active Substance: LEVOFLOXACIN
     Indication: HEAD INJURY
  14. CIPROFLOXACIN. [Suspect]
     Active Substance: CIPROFLOXACIN
     Indication: INJURY
     Dosage: UNK
     Route: 065
  15. MEROPENEM. [Suspect]
     Active Substance: MEROPENEM
     Dosage: UNK
     Route: 065
  16. FOSFOMYCIN [Suspect]
     Active Substance: FOSFOMYCIN
     Indication: INJURY
     Dosage: UNK
     Route: 065
  17. PREDNISOLONE. [Suspect]
     Active Substance: PREDNISOLONE
     Indication: INJURY
     Dosage: UNK
     Route: 065
  18. TOBRAMYCIN. [Suspect]
     Active Substance: TOBRAMYCIN
     Indication: INJURY
     Dosage: UNK
     Route: 065
  19. ZYVOXID [Suspect]
     Active Substance: LINEZOLID
     Indication: INJURY
     Dosage: UNK
     Route: 065
  20. ZYVOXID [Suspect]
     Active Substance: LINEZOLID
     Indication: HEAD INJURY
  21. CEFOTAXIME SODIUM [Suspect]
     Active Substance: CEFOTAXIME SODIUM
     Indication: HEAD INJURY
     Dosage: UNK
     Route: 065
  22. FOSFOMYCIN [Suspect]
     Active Substance: FOSFOMYCIN
     Indication: HEAD INJURY
  23. ERYTHROMYCIN. [Suspect]
     Active Substance: ERYTHROMYCIN
     Indication: HEAD INJURY
  24. CIPROFLOXACIN. [Suspect]
     Active Substance: CIPROFLOXACIN
     Indication: HEAD INJURY
  25. TOBRAMYCIN. [Suspect]
     Active Substance: TOBRAMYCIN
     Indication: HEAD INJURY
  26. CASPOFUNGIN [Concomitant]
     Active Substance: CASPOFUNGIN
     Indication: PRODUCT USED FOR UNKNOWN INDICATION
     Dosage: UNK

REACTIONS (8)
  - Enterocolitis [Recovered/Resolved]
  - Dysbacteriosis [Recovered/Resolved]
  - Mucosal hyperaemia [Recovered/Resolved]
  - Endoscopy abnormal [Recovered/Resolved]
  - Intestinal villi atrophy [Recovered/Resolved]
  - Haemophilus infection [Recovered/Resolved]
  - Histology abnormal [Recovered/Resolved]
  - Diarrhoea [Recovered/Resolved]
